FAERS Safety Report 24722697 (Version 1)
Quarter: 2024Q4

REPORT INFORMATION
  Report Type: Spontaneous
  Country: US (occurrence: US)
  Receive Date: 20241211
  Receipt Date: 20241211
  Transmission Date: 20250114
  Serious: No
  Sender: BRISTOL-MYERS SQUIBB COMPANY
  Company Number: US-BRISTOL-MYERS SQUIBB COMPANY-2024-192690

PATIENT
  Age: 83 Year
  Sex: Male
  Weight: 124.74 kg

DRUGS (2)
  1. ELIQUIS [Suspect]
     Active Substance: APIXABAN
     Indication: Pulmonary thrombosis
     Route: 048
  2. ELIQUIS [Suspect]
     Active Substance: APIXABAN
     Indication: Thrombosis

REACTIONS (3)
  - Peripheral swelling [Unknown]
  - Arterial occlusive disease [Unknown]
  - Blood calcium increased [Unknown]
